FAERS Safety Report 14543821 (Version 2)
Quarter: 2018Q2

REPORT INFORMATION
  Report Type: Spontaneous
  Country: US (occurrence: US)
  Receive Date: 20180216
  Receipt Date: 20180406
  Transmission Date: 20180711
  Serious: Yes (Other)
  Sender: FDA-Public Use
  Company Number: US-LANNETT COMPANY, INC.-US-2018LAN000469

PATIENT

DRUGS (4)
  1. FERROUS SULFATE ELIXIR [Suspect]
     Active Substance: FERROUS SULFATE
     Dosage: 220 MG/5 ML, TID (BOTTLE 4) TID
     Route: 048
     Dates: start: 20180206
  2. FERROUS SULFATE ELIXIR [Suspect]
     Active Substance: FERROUS SULFATE
     Indication: ANAEMIA
     Dosage: 220 MG/5 ML, TID (BOTTLE 3) TID
     Route: 048
     Dates: start: 20180202
  3. FERROUS SULFATE ELIXIR [Suspect]
     Active Substance: FERROUS SULFATE
     Indication: HAEMORRHAGE
     Dosage: 220 MG/5 ML, TID (BOTTLE 1)
     Route: 048
     Dates: start: 20170215
  4. FERROUS SULFATE ELIXIR [Suspect]
     Active Substance: FERROUS SULFATE
     Indication: MINERAL SUPPLEMENTATION
     Dosage: 220 MG/5 ML, TID (BOTTLE 2) TID
     Route: 048
     Dates: start: 20180122

REACTIONS (3)
  - Product physical issue [Unknown]
  - Drug ineffective [Unknown]
  - Bladder cancer [Not Recovered/Not Resolved]

NARRATIVE: CASE EVENT DATE: 20180122
